FAERS Safety Report 17681897 (Version 1)
Quarter: 2020Q2

REPORT INFORMATION
  Report Type: Spontaneous
  Country: US (occurrence: US)
  Receive Date: 20200418
  Receipt Date: 20200418
  Transmission Date: 20200714
  Serious: Yes (Death, Life-Threatening, Hospitalization, Other)
  Sender: FDA-Public Use
  Company Number: US-DRREDDYS-USA/USA/20/0122130

PATIENT
  Age: 9 Year
  Sex: Female

DRUGS (7)
  1. ONDANSETRON [Concomitant]
     Active Substance: ONDANSETRON
     Indication: PRODUCT USED FOR UNKNOWN INDICATION
  2. DEXAMETHASONE SODIUM PHOSPHATE INJECTION, 4 MG/ML [Concomitant]
     Active Substance: DEXAMETHASONE SODIUM PHOSPHATE
     Indication: PRODUCT USED FOR UNKNOWN INDICATION
  3. PROPOFOL INJECTABLE EMULSION [Suspect]
     Active Substance: PROPOFOL
     Indication: ANAESTHESIA
     Route: 040
  4. FENTANYL CITRATE. [Concomitant]
     Active Substance: FENTANYL CITRATE
     Indication: PAIN MANAGEMENT
  5. NALOXONE [Concomitant]
     Active Substance: NALOXONE
     Indication: PAIN MANAGEMENT
  6. MORPHINE [Concomitant]
     Active Substance: MORPHINE
     Indication: PAIN MANAGEMENT
  7. SEVOFLURANE. [Concomitant]
     Active Substance: SEVOFLURANE
     Indication: ANAESTHESIA

REACTIONS (6)
  - Cardiac arrest [Fatal]
  - Electrocardiogram ST segment elevation [Fatal]
  - Electrocardiogram abnormal [Fatal]
  - Ventricular tachycardia [Fatal]
  - Atrioventricular block first degree [Fatal]
  - Bundle branch block right [Fatal]
